FAERS Safety Report 4735200-4 (Version None)
Quarter: 2005Q3

REPORT INFORMATION
  Report Type: 
  Country: None (occurrence: None)
  Receive Date: 20050804
  Receipt Date: 20050713
  Transmission Date: 20060218
  Serious: Yes (Death)
  Sender: FDA-Public Use
  Company Number: USA050496236

PATIENT
  Age: 78 Year
  Sex: Male
  Weight: 73 kg

DRUGS (4)
  1. CYMBALTA [Suspect]
     Indication: DIABETIC NEUROPATHY
     Dosage: 180 MG DAY
     Dates: start: 20041029
  2. SEROQUEL [Concomitant]
  3. RITALIN [Concomitant]
  4. FENTANYL [Concomitant]

REACTIONS (2)
  - CARDIAC ARREST [None]
  - PRESCRIBED OVERDOSE [None]
